FAERS Safety Report 15136012 (Version 1)
Quarter: 2018Q3

REPORT INFORMATION
  Report Type: Spontaneous
  Country: IT (occurrence: IT)
  Receive Date: 20180712
  Receipt Date: 20180712
  Transmission Date: 20181010
  Serious: Yes (Other)
  Sender: FDA-Public Use
  Company Number: IT-MYLANLABS-2018M1049682

PATIENT
  Age: 52 Year
  Sex: Female

DRUGS (3)
  1. PANTORC [Concomitant]
     Active Substance: PANTOPRAZOLE SODIUM
     Indication: GASTROOESOPHAGEAL REFLUX DISEASE
     Dosage: 20 MG, QD
     Route: 048
  2. BISOPROLOL FUMARATE. [Concomitant]
     Active Substance: BISOPROLOL FUMARATE
     Indication: HYPERTENSION
     Route: 048
  3. PAROXETINA MYLAN GENERICS 20 MG COMPRESSE RIVESTITE CON FILM [Suspect]
     Active Substance: PAROXETINE
     Indication: SEASONAL AFFECTIVE DISORDER
     Dosage: 20 MG, QD
     Route: 048
     Dates: start: 20170311, end: 20170318

REACTIONS (3)
  - Asthenia [Recovered/Resolved]
  - Confusional state [Recovered/Resolved]
  - Depressed level of consciousness [Recovered/Resolved]

NARRATIVE: CASE EVENT DATE: 20170318
